FAERS Safety Report 5378687-9 (Version None)
Quarter: 2007Q3

REPORT INFORMATION
  Report Type: 
  Country: None (occurrence: None)
  Receive Date: 20070702
  Receipt Date: 20070702
  Transmission Date: 20080115
  Serious: Yes (Other)
  Sender: FDA-Public Use
  Company Number: None

PATIENT
  Age: 68 Year
  Sex: Female
  Weight: 81.1939 kg

DRUGS (1)
  1. NATURE'S GATE NATURAL TOOTHPASTE LEVLAD, INC [Suspect]
     Indication: DENTAL DISORDER PROPHYLAXIS
     Dosage: SMALL TWICE DAILY DENTAL
     Route: 004
     Dates: start: 20070101, end: 20070502

REACTIONS (3)
  - GINGIVAL PAIN [None]
  - PHARMACEUTICAL PRODUCT COMPLAINT [None]
  - POOR QUALITY DRUG ADMINISTERED [None]
